FAERS Safety Report 4910421-6 (Version None)
Quarter: 2006Q1

REPORT INFORMATION
  Report Type: 
  Country: None (occurrence: None)
  Receive Date: 20060209
  Receipt Date: 20060201
  Transmission Date: 20060701
  Serious: Yes (Other)
  Sender: FDA-Public Use
  Company Number: 2006016035

PATIENT
  Age: 81 Year
  Sex: Male
  Weight: 77.1115 kg

DRUGS (4)
  1. LIPITOR [Suspect]
     Indication: BLOOD CHOLESTEROL INCREASED
     Dosage: 10 MG (10 MG, 1 IN 1 D), ORAL
     Route: 048
     Dates: start: 20050301
  2. PREDNISOLONE [Suspect]
     Indication: POSTOPERATIVE CARE
     Dosage: OPHTHALMIC
     Route: 047
     Dates: start: 20050801
  3. ALL OTHER THERAPEUTIC PRODUCTS (ALL OTHER THERAPEUTIC PRODUCTS) [Suspect]
     Indication: TOOTH REPAIR
     Dates: start: 20050101
  4. TIMOLOL MALEATE [Concomitant]

REACTIONS (3)
  - CATARACT OPERATION [None]
  - DENTAL CARIES [None]
  - DERMATITIS [None]
